FAERS Safety Report 25927920 (Version 1)
Quarter: 2025Q4

REPORT INFORMATION
  Report Type: Spontaneous
  Country: US (occurrence: US)
  Receive Date: 20251016
  Receipt Date: 20251016
  Transmission Date: 20260118
  Serious: No
  Sender: SANOFI AVENTIS
  Company Number: US-SA-2025SA306619

PATIENT
  Age: 1 Year
  Sex: Female
  Weight: 8.16 kg

DRUGS (1)
  1. DUPIXENT [Suspect]
     Active Substance: DUPILUMAB
     Indication: Eczema
     Dosage: UNK UNK, QM

REACTIONS (2)
  - Product administered to patient of inappropriate age [Unknown]
  - Intercepted product storage error [Unknown]
